FAERS Safety Report 9649489 (Version 6)
Quarter: 2014Q3

REPORT INFORMATION
  Report Type: Report from Study
  Country: US (occurrence: US)
  Receive Date: 20131028
  Receipt Date: 20140819
  Transmission Date: 20150326
  Serious: Yes (Hospitalization)
  Sender: FDA-Public Use
  Company Number: US-ACTELION-A-NJ2013-89277

PATIENT
  Age: 49 Year
  Sex: Female

DRUGS (1)
  1. TRACLEER [Suspect]
     Active Substance: BOSENTAN\BOSENTAN MONOHYDRATE
     Indication: PULMONARY ARTERIAL HYPERTENSION
     Dosage: UNK
     Route: 048

REACTIONS (3)
  - Bone graft [Unknown]
  - Wound infection [Unknown]
  - Localised infection [Unknown]

NARRATIVE: CASE EVENT DATE: 20131008
